FAERS Safety Report 5566514-6 (Version None)
Quarter: 2007Q4

REPORT INFORMATION
  Report Type: 
  Country: None (occurrence: None)
  Receive Date: 20071219
  Receipt Date: 20071207
  Transmission Date: 20080405
  Serious: Yes (Other)
  Sender: FDA-Public Use
  Company Number: BR-BAYER-BR-2007-033866

PATIENT
  Age: 55 Year
  Sex: Female

DRUGS (2)
  1. BETASERON [Suspect]
     Indication: MULTIPLE SCLEROSIS
     Route: 058
     Dates: start: 20070111
  2. QUADRIDERM [Concomitant]
     Indication: SKIN LESION

REACTIONS (10)
  - ARTHROPOD BITE [None]
  - BLOOD TEST ABNORMAL [None]
  - BURNING SENSATION [None]
  - CHOLELITHIASIS [None]
  - GAIT DISTURBANCE [None]
  - MULTIPLE SCLEROSIS [None]
  - OEDEMA PERIPHERAL [None]
  - PAIN IN EXTREMITY [None]
  - SCAR [None]
  - SENSATION OF HEAVINESS [None]
